FAERS Safety Report 5847165-2 (Version None)
Quarter: 2008Q3

REPORT INFORMATION
  Report Type: 
  Country: None (occurrence: None)
  Receive Date: 20080815
  Receipt Date: 20080807
  Transmission Date: 20090109
  Serious: Yes (Other)
  Sender: FDA-Public Use
  Company Number: PHEH2008US06950

PATIENT

DRUGS (1)
  1. ZOMETA [Suspect]

REACTIONS (3)
  - ASTHENIA [None]
  - EPILEPSY [None]
  - MUSCLE SPASTICITY [None]
